FAERS Safety Report 4604793-X (Version None)
Quarter: 2005Q2

REPORT INFORMATION
  Report Type: 
  Country: None (occurrence: None)
  Receive Date: 20050224
  Receipt Date: 20040803
  Transmission Date: 20051028
  Serious: Yes (Death)
  Sender: FDA-Public Use
  Company Number: 04P-163-0269001-00

PATIENT
  Age: 35 Year
  Sex: Male

DRUGS (1)
  1. VICODIN [Suspect]

REACTIONS (1)
  - OVERDOSE [None]
